FAERS Safety Report 8125600-7 (Version None)
Quarter: 2012Q1

REPORT INFORMATION
  Report Type: 
  Country: None (occurrence: None)
  Receive Date: 20120209
  Receipt Date: 20120206
  Transmission Date: 20120608
  Serious: Yes (Other)
  Sender: FDA-Public Use
  Company Number: DE-PFIZER INC-2011263489

PATIENT
  Age: 59 Year
  Sex: Male

DRUGS (13)
  1. METFORMIN [Concomitant]
     Dosage: 1000, UNK
  2. PANTOPRAZOLE [Concomitant]
     Dosage: UNK
  3. PREDNISONE TAB [Concomitant]
     Dosage: UNK
  4. PROBENECID [Concomitant]
     Dosage: UNK
  5. REVATIO [Suspect]
     Indication: PULMONARY HYPERTENSION
     Dosage: 20 MG, 3X/DAY
     Dates: start: 20060401
  6. TORASEMIDE [Concomitant]
     Dosage: UNK
  7. BISOPROLOL [Concomitant]
     Dosage: UNK
  8. GLIBENCLAMIDE [Concomitant]
     Dosage: UNK
  9. TAMSULOSIN [Concomitant]
     Dosage: UNK
  10. HYDROCHLOROTHIAZIDE [Concomitant]
     Dosage: UNK
  11. TRACLEER [Concomitant]
     Dosage: UNK
  12. LYRICA [Suspect]
     Indication: POLYNEUROPATHY
     Dosage: 75 MG, 1X/DAY
     Route: 048
     Dates: start: 20111007, end: 20111024
  13. MARCUMAR [Concomitant]
     Dosage: UNK

REACTIONS (2)
  - DIPLOPIA [None]
  - DRUG EFFECT DECREASED [None]
